FAERS Safety Report 6981217-9 (Version None)
Quarter: 2010Q3

REPORT INFORMATION
  Report Type: 
  Country: None (occurrence: None)
  Receive Date: 20100914
  Receipt Date: 20100818
  Transmission Date: 20110219
  Serious: No
  Sender: FDA-Public Use
  Company Number: US-PFIZER INC-2010104384

PATIENT
  Sex: Female

DRUGS (3)
  1. LYRICA [Suspect]
     Indication: HERPES ZOSTER
     Dosage: 150 MG, 1X/DAY
     Route: 048
     Dates: start: 20100627
  2. LIPITOR [Concomitant]
     Indication: PROPHYLAXIS
     Dosage: 10 MG, DAILY
     Route: 048
  3. METOPROLOL [Concomitant]
     Indication: HYPERTENSION
     Dosage: 25 MG, DAILY

REACTIONS (2)
  - MUSCULOSKELETAL STIFFNESS [None]
  - RESTLESSNESS [None]
